FAERS Safety Report 5961807-2 (Version None)
Quarter: 2008Q4

REPORT INFORMATION
  Report Type: 
  Country: None (occurrence: None)
  Receive Date: 20081114
  Receipt Date: 20080818
  Transmission Date: 20090506
  Serious: Yes (Other)
  Sender: FDA-Public Use
  Company Number: WAES 0808USA03070

PATIENT
  Age: 41 Year
  Sex: Female

DRUGS (3)
  1. ISENTRESS [Suspect]
     Indication: HIV INFECTION
     Dosage: PO
     Route: 048
     Dates: end: 20080304
  2. INTELENCE [Suspect]
     Indication: HIV INFECTION
     Dosage: DAILY/PO
     Route: 048
     Dates: start: 20080304, end: 20080101
  3. TENOFOVIR UNK [Suspect]
     Indication: HIV INFECTION

REACTIONS (1)
  - STEVENS-JOHNSON SYNDROME [None]
